FAERS Safety Report 13101938 (Version 6)
Quarter: 2018Q2

REPORT INFORMATION
  Report Type: Spontaneous
  Country: US (occurrence: US)
  Receive Date: 20170110
  Receipt Date: 20180412
  Transmission Date: 20180711
  Serious: No
  Sender: FDA-Public Use
  Company Number: US-PFIZER INC-2017004772

PATIENT
  Age: 69 Year
  Sex: Female
  Weight: 77 kg

DRUGS (6)
  1. IBRANCE [Suspect]
     Active Substance: PALBOCICLIB
     Indication: BREAST CANCER FEMALE
     Dosage: 125 MG, CYCLIC (TAKE 1 CAPSULE BY MOUTH EVERY DAY FOR 21 DAYS THEN TAKE 7 DAYS OFF AS DIRECTED)
     Route: 048
     Dates: start: 20161213, end: 201612
  2. IBRANCE [Suspect]
     Active Substance: PALBOCICLIB
     Dosage: UNK
  3. IBRANCE [Suspect]
     Active Substance: PALBOCICLIB
     Dosage: 75 MG, 1X/DAY (ONCE A DAY FOR 2 WEEK)
     Dates: start: 201702, end: 201703
  4. IBRANCE [Suspect]
     Active Substance: PALBOCICLIB
     Dosage: 100 MG, CYCLIC (QD FOR 21 DAYS ON AND 7 DAYS OFF)
     Dates: start: 20161221
  5. IBRANCE [Suspect]
     Active Substance: PALBOCICLIB
     Dosage: 75 MG, 1X/DAY (ONCE A DAY FOR 2 WEEK)
     Dates: start: 201705
  6. IBRANCE [Suspect]
     Active Substance: PALBOCICLIB
     Dosage: 75 MG, 1X/DAY (FOR 2 WEEKS)
     Route: 048

REACTIONS (1)
  - Immune system disorder [Recovering/Resolving]

NARRATIVE: CASE EVENT DATE: 201612
